FAERS Safety Report 24174173 (Version 1)
Quarter: 2024Q3

REPORT INFORMATION
  Report Type: Report from Study
  Country: US (occurrence: US)
  Receive Date: 20240805
  Receipt Date: 20240805
  Transmission Date: 20241017
  Serious: Yes (Other)
  Sender: PFIZER
  Company Number: US-PFIZER INC-PV202300158263

PATIENT
  Age: 60 Year
  Sex: Female

DRUGS (5)
  1. XELJANZ XR [Suspect]
     Active Substance: TOFACITINIB CITRATE
     Indication: Rheumatoid arthritis
     Dosage: 11 MG, 1X/DAY
     Route: 048
     Dates: start: 20210210, end: 202405
  2. ACTEMRA ACTPEN [Concomitant]
     Active Substance: TOCILIZUMAB
     Dosage: UNK
  3. KEVZARA [Concomitant]
     Active Substance: SARILUMAB
     Dosage: 200MG/1.14ML PEN (4=2)
  4. OLUMIANT [Concomitant]
     Active Substance: BARICITINIB
     Dosage: 2 MG
  5. RINVOQ [Concomitant]
     Active Substance: UPADACITINIB
     Dosage: 15 MG (EXTEND-RELEASED TABLET)

REACTIONS (6)
  - Blood pressure increased [Unknown]
  - Epistaxis [Unknown]
  - Drug ineffective [Not Recovered/Not Resolved]
  - Loss of personal independence in daily activities [Not Recovered/Not Resolved]
  - Pain [Not Recovered/Not Resolved]
  - Headache [Not Recovered/Not Resolved]
